FAERS Safety Report 9196087 (Version 2)
Quarter: 2013Q2

REPORT INFORMATION
  Report Type: Spontaneous
  Country: ZA (occurrence: ZA)
  Receive Date: 20130328
  Receipt Date: 20130416
  Transmission Date: 20140414
  Serious: Yes (Other)
  Sender: FDA-Public Use
  Company Number: ZA-RANBAXY-2013RR-66529

PATIENT
  Age: 124 Month
  Sex: Male

DRUGS (13)
  1. LINEZOLIDE [Suspect]
     Indication: TUBERCULOSIS
     Dosage: 300 MG/DAY
     Route: 048
  2. LAMIVUDINE [Suspect]
     Indication: HIV INFECTION
     Dosage: UNK
     Route: 065
  3. ZIDOVUDINE [Suspect]
     Indication: HIV INFECTION
     Dosage: UNK
     Route: 065
  4. EFAVIRENZ [Suspect]
     Indication: HIV INFECTION
     Dosage: UNK
     Route: 065
  5. STAVUDINE [Suspect]
     Indication: HIV INFECTION
     Dosage: UNK
     Route: 065
  6. ISONIAZID [Suspect]
     Indication: TUBERCULOSIS
     Dosage: UNK
     Route: 065
  7. PYRAZINAMIDE [Suspect]
     Indication: TUBERCULOSIS
     Dosage: UNK
     Route: 065
  8. CLARITHROMYCIN [Suspect]
     Indication: TUBERCULOSIS
     Dosage: UNK
     Route: 065
  9. AMOXICILLIN AND CLAVULANIC ACID [Suspect]
     Indication: TUBERCULOSIS
     Dosage: UNK
     Route: 065
  10. CAPREOMYCIN [Suspect]
     Indication: TUBERCULOSIS
     Dosage: UNK
     Route: 065
  11. ETHIONAMIDE [Suspect]
     Indication: TUBERCULOSIS
     Dosage: UNK
     Route: 065
  12. TERIZIDONE [Suspect]
     Indication: TUBERCULOSIS
     Dosage: UNK
     Route: 065
  13. AMINOSALICYLIC ACID [Suspect]
     Indication: TUBERCULOSIS
     Dosage: UNK
     Route: 065

REACTIONS (3)
  - Pancreatitis chronic [Recovered/Resolved]
  - Anaemia [Recovered/Resolved]
  - Hypothyroidism [Unknown]
